FAERS Safety Report 17474433 (Version 2)
Quarter: 2020Q1

REPORT INFORMATION
  Report Type: Spontaneous
  Country: CH (occurrence: CH)
  Receive Date: 20200228
  Receipt Date: 20200306
  Transmission Date: 20200409
  Serious: Yes (Hospitalization, Other)
  Sender: FDA-Public Use
  Company Number: CH-ASTRAZENECA-2020SE28312

PATIENT
  Age: 23 Year
  Sex: Female

DRUGS (8)
  1. SOLU-MEDROL [Concomitant]
     Active Substance: METHYLPREDNISOLONE SODIUM SUCCINATE
  2. SYMBICORT [Concomitant]
     Active Substance: BUDESONIDE\FORMOTEROL FUMARATE DIHYDRATE
     Dosage: 8X200/6MCG
     Route: 055
     Dates: start: 202001
  3. VENTOLIN [Concomitant]
     Active Substance: ALBUTEROL SULFATE
     Dates: start: 202001
  4. IPRAMOL [Concomitant]
     Active Substance: ALBUTEROL SULFATE\IPRATROPIUM BROMIDE
     Dosage: 4X/D
     Route: 055
     Dates: start: 202001
  5. FASENRA [Suspect]
     Active Substance: BENRALIZUMAB
     Indication: ASTHMA
     Dosage: 30.0MG UNKNOWN
     Route: 058
     Dates: start: 20200214
  6. TAVEGYL [Concomitant]
     Active Substance: CLEMASTINE FUMARATE
  7. SALBUTAMOL [Concomitant]
     Active Substance: ALBUTEROL
     Dosage: 4XD
     Dates: start: 202001
  8. PREDNISON [Concomitant]
     Active Substance: PREDNISONE
     Dosage: 70MG/TAG
     Route: 065
     Dates: start: 20200213

REACTIONS (5)
  - Drug hypersensitivity [Recovered/Resolved]
  - Rash pruritic [Recovered/Resolved]
  - Asthma [Unknown]
  - Headache [Recovered/Resolved]
  - Dyspnoea [Recovered/Resolved]

NARRATIVE: CASE EVENT DATE: 20200214
